FAERS Safety Report 18349489 (Version 1)
Quarter: 2020Q4

REPORT INFORMATION
  Report Type: Spontaneous
  Country: US (occurrence: US)
  Receive Date: 20201006
  Receipt Date: 20201006
  Transmission Date: 20210114
  Serious: No
  Sender: FDA-Public Use
  Company Number: US-PFIZER INC-2019472863

PATIENT
  Age: 76 Year
  Sex: Female
  Weight: 65.77 kg

DRUGS (6)
  1. LYRICA [Suspect]
     Active Substance: PREGABALIN
     Indication: HEADACHE
     Dosage: 75 MG, 3X/DAY
  2. LYRICA [Suspect]
     Active Substance: PREGABALIN
     Indication: MUSCLE SPASMS
     Dosage: 75 MG, 1X/DAY (TAKE 1 CAPSULE BY MOUTH AT BEDTIME)
     Route: 048
     Dates: start: 20190910
  3. LYRICA [Suspect]
     Active Substance: PREGABALIN
     Dosage: 100 MG
  4. LYRICA [Suspect]
     Active Substance: PREGABALIN
     Dosage: 75 MG (2-3 CAPSULES BY MOUTH A DAY)
     Route: 048
  5. LYRICA [Suspect]
     Active Substance: PREGABALIN
     Dosage: 50 MG
  6. LYRICA [Suspect]
     Active Substance: PREGABALIN
     Dosage: 25 MG

REACTIONS (3)
  - Off label use [Unknown]
  - Visual impairment [Recovering/Resolving]
  - Product use in unapproved indication [Unknown]

NARRATIVE: CASE EVENT DATE: 20190910
